FAERS Safety Report 20925000 (Version 1)
Quarter: 2022Q2

REPORT INFORMATION
  Report Type: Spontaneous
  Country: GB (occurrence: GB)
  Receive Date: 20220607
  Receipt Date: 20220607
  Transmission Date: 20220720
  Serious: Yes (Hospitalization)
  Sender: FDA-Public Use
  Company Number: GB-VERTEX PHARMACEUTICALS-2022-008546

PATIENT
  Sex: Male

DRUGS (11)
  1. ELEXACAFTOR\IVACAFTOR\TEZACAFTOR [Suspect]
     Active Substance: ELEXACAFTOR\IVACAFTOR\TEZACAFTOR
     Indication: Cystic fibrosis
     Dosage: (75MG IVACAFTOR/ 50MG TEZACAFTOR/ 100MG ELEXACAFTOR);2 TABLETS IN THE MORNING
     Route: 048
  2. VITAMIN A [Concomitant]
     Active Substance: VITAMIN A
  3. VITAMIN E [Concomitant]
     Active Substance: .ALPHA.-TOCOPHEROL
  4. VITAMIN D [Concomitant]
     Active Substance: VITAMIN D NOS
  5. VITAMIN K [Concomitant]
     Active Substance: PHYTONADIONE
  6. COLISTIN [Concomitant]
     Active Substance: COLISTIN
  7. PULMOZYME [Concomitant]
     Active Substance: DORNASE ALFA
  8. DONEPEN [Concomitant]
  9. CREON [Concomitant]
     Active Substance: PANCRELIPASE AMYLASE\PANCRELIPASE LIPASE\PANCRELIPASE PROTEASE
  10. SALINE [Concomitant]
     Active Substance: SODIUM CHLORIDE
  11. UNSPECIFIED INGREDIENT [Concomitant]
     Active Substance: UNSPECIFIED INGREDIENT

REACTIONS (1)
  - Renal transplant [Unknown]

NARRATIVE: CASE EVENT DATE: 20220101
